FAERS Safety Report 9839420 (Version 1)
Quarter: 2014Q1

REPORT INFORMATION
  Report Type: Spontaneous
  Country: US (occurrence: US)
  Receive Date: 20140123
  Receipt Date: 20140123
  Transmission Date: 20141002
  Serious: Yes (Hospitalization)
  Sender: FDA-Public Use
  Company Number: US-ROCHE-1334494

PATIENT
  Sex: Male

DRUGS (6)
  1. CELLCEPT [Suspect]
     Indication: RENAL TRANSPLANT
     Dosage: 2 AT NIGHT, 1 IN THE MORNING
     Route: 048
     Dates: start: 1998
  2. PROGRAF [Concomitant]
     Indication: RENAL TRANSPLANT
     Route: 048
  3. PREDNISONE [Concomitant]
     Route: 048
  4. CALCIUM CARBONATE [Concomitant]
     Route: 048
  5. LABETALOL [Concomitant]
     Indication: RENAL TRANSPLANT
     Route: 048
  6. ENALAPRIL [Concomitant]
     Indication: HYPERTENSION
     Route: 065

REACTIONS (2)
  - Fatigue [Unknown]
  - Bone disorder [Recovered/Resolved]
